FAERS Safety Report 4269021-6 (Version None)
Quarter: 2004Q1

REPORT INFORMATION
  Report Type: 
  Country: None (occurrence: None)
  Receive Date: 20040112
  Receipt Date: 20040112
  Transmission Date: 20041129
  Serious: Yes (Life-Threatening, Disabling, Other)
  Sender: FDA-Public Use
  Company Number: None

PATIENT
  Age: 26 Year
  Sex: Female
  Weight: 122.4712 kg

DRUGS (2)
  1. SEROXAT LIQUID 20 MG BEECHAMS GSK [Suspect]
     Indication: DEPRESSION
     Dosage: 11 MG DAILY ORAL
     Route: 048
  2. SEROXAT TABLET 20MG [Suspect]

REACTIONS (19)
  - ACNE [None]
  - AGGRESSION [None]
  - DEPRESSION [None]
  - DIARRHOEA [None]
  - DIZZINESS [None]
  - DRUG WITHDRAWAL SYNDROME [None]
  - EAR PAIN [None]
  - FEELING ABNORMAL [None]
  - GASTRIC DISORDER [None]
  - HYPERHIDROSIS [None]
  - INSOMNIA [None]
  - NAUSEA [None]
  - NIGHTMARE [None]
  - PARAESTHESIA [None]
  - RASH [None]
  - SELF-INJURIOUS IDEATION [None]
  - SEXUAL DYSFUNCTION [None]
  - SUICIDAL IDEATION [None]
  - VISUAL DISTURBANCE [None]
